FAERS Safety Report 14588300 (Version 1)
Quarter: 2018Q1

REPORT INFORMATION
  Report Type: Spontaneous
  Country: US (occurrence: US)
  Receive Date: 20180301
  Receipt Date: 20180301
  Transmission Date: 20180509
  Serious: Yes (Hospitalization)
  Sender: FDA-Public Use
  Company Number: US-EAGLE PHARMACEUTICALS, INC.-US-2018EAG000018

PATIENT
  Age: 5 Year
  Sex: Male

DRUGS (2)
  1. DANTROLENE SODIUM. [Suspect]
     Active Substance: DANTROLENE SODIUM
     Indication: HYPERTHERMIA MALIGNANT
     Dosage: 60 MG; TOTAL OF 710 MG OVER 48 HOURS
     Route: 042
  2. SEVOFLURANE. [Suspect]
     Active Substance: SEVOFLURANE
     Indication: INDUCTION OF ANAESTHESIA
     Dosage: UNK

REACTIONS (1)
  - Liver injury [Recovered/Resolved]
